FAERS Safety Report 19570398 (Version 1)
Quarter: 2021Q3

REPORT INFORMATION
  Report Type: Spontaneous
  Country: CA (occurrence: CA)
  Receive Date: 20210715
  Receipt Date: 20210715
  Transmission Date: 20211014
  Serious: Yes (Other)
  Sender: FDA-Public Use
  Company Number: CA-ROCHE-2867056

PATIENT
  Age: 72 Year
  Sex: Female

DRUGS (6)
  1. LOVASTATIN. [Concomitant]
     Active Substance: LOVASTATIN
  2. OXYBUTYNIN. [Concomitant]
     Active Substance: OXYBUTYNIN CHLORIDE
  3. VALSARTAN. [Concomitant]
     Active Substance: VALSARTAN
  4. LEVOTHYROXINE. [Concomitant]
     Active Substance: LEVOTHYROXINE
  5. BEVACIZUMAB. [Suspect]
     Active Substance: BEVACIZUMAB
     Indication: HEREDITARY HAEMORRHAGIC TELANGIECTASIA
     Route: 065
  6. MODAFINIL. [Concomitant]
     Active Substance: MODAFINIL

REACTIONS (15)
  - Heart rate increased [Unknown]
  - Pain in extremity [Unknown]
  - Transferrin saturation increased [Unknown]
  - Drug hypersensitivity [Unknown]
  - Epistaxis [Unknown]
  - Multiple sclerosis [Unknown]
  - Sinusitis [Unknown]
  - Fatigue [Unknown]
  - Asthenia [Unknown]
  - Seasonal allergy [Unknown]
  - Intentional product use issue [Unknown]
  - Off label use [Unknown]
  - Allergy to animal [Unknown]
  - Haematocrit increased [Unknown]
  - Pain [Unknown]
